FAERS Safety Report 21302622 (Version 3)
Quarter: 2023Q1

REPORT INFORMATION
  Report Type: Spontaneous
  Country: IN (occurrence: IN)
  Receive Date: 20220907
  Receipt Date: 20230307
  Transmission Date: 20230417
  Serious: Yes (Hospitalization, Other)
  Sender: FDA-Public Use
  Company Number: IN-PFIZER INC-PV202200057853

PATIENT
  Age: 47 Year
  Sex: Female

DRUGS (1)
  1. PALBOCICLIB [Suspect]
     Active Substance: PALBOCICLIB
     Dosage: 125 MG, 1X/DAY
     Route: 048
     Dates: start: 202204

REACTIONS (11)
  - Full blood count abnormal [Unknown]
  - Haemoglobin decreased [Unknown]
  - Arthralgia [Unknown]
  - Vomiting [Recovered/Resolved]
  - Gait inability [Unknown]
  - Alopecia [Unknown]
  - Bone disorder [Unknown]
  - Dermatomyositis [Unknown]
  - Neoplasm progression [Unknown]
  - Antinuclear antibody positive [Unknown]
  - Pallor [Unknown]
